FAERS Safety Report 18142491 (Version 2)
Quarter: 2020Q4

REPORT INFORMATION
  Report Type: Spontaneous
  Country: FI (occurrence: FI)
  Receive Date: 20200813
  Receipt Date: 20201001
  Transmission Date: 20210113
  Serious: Yes (Other)
  Sender: FDA-Public Use
  Company Number: FI-SUN PHARMACEUTICAL INDUSTRIES LTD-2020RR-257222

PATIENT
  Age: 34 Year
  Sex: Male

DRUGS (24)
  1. MELATONIN [Suspect]
     Active Substance: MELATONIN
     Indication: BEHAVIOUR DISORDER
     Dosage: 3 MILLIGRAM, QD
     Route: 065
     Dates: start: 2017
  2. RISPERIDONE. [Suspect]
     Active Substance: RISPERIDONE
     Indication: BEHAVIOUR DISORDER
     Dosage: 4 MILLIGRAM, QD
     Route: 065
     Dates: start: 2017
  3. RISPERIDONE. [Suspect]
     Active Substance: RISPERIDONE
     Dosage: 3 MILLIGRAM, DAILY
     Route: 065
  4. OXCARBAZEPINE. [Suspect]
     Active Substance: OXCARBAZEPINE
     Indication: SEIZURE
     Dosage: 900 MILLIGRAM, QD
     Route: 065
  5. QUETIAPINE. [Suspect]
     Active Substance: QUETIAPINE
     Indication: BEHAVIOUR DISORDER
     Dosage: UNK
     Route: 065
  6. MACROGOL 3350 [Suspect]
     Active Substance: POLYETHYLENE GLYCOL 3350
     Indication: BEHAVIOUR DISORDER
     Dosage: UNK, 3 BAGS / DAY ()
     Route: 065
  7. PANTOPRAZOLE [Suspect]
     Active Substance: PANTOPRAZOLE
     Indication: BEHAVIOUR DISORDER
     Dosage: 20 MILLIGRAM, QD
     Route: 065
     Dates: start: 2017
  8. CARBAMAZEPINE. [Suspect]
     Active Substance: CARBAMAZEPINE
     Indication: BEHAVIOUR DISORDER
  9. BISOPROLOL [Suspect]
     Active Substance: BISOPROLOL
     Indication: BEHAVIOUR DISORDER
     Dosage: UNK
     Route: 065
  10. METOPROLOL. [Suspect]
     Active Substance: METOPROLOL
     Indication: BEHAVIOUR DISORDER
     Dosage: UNK
     Route: 005
  11. CITALOPRAM [Suspect]
     Active Substance: CITALOPRAM HYDROBROMIDE
     Indication: BEHAVIOUR DISORDER
     Dosage: UNK
     Route: 065
  12. LORAZEPAM. [Suspect]
     Active Substance: LORAZEPAM
     Indication: BEHAVIOUR DISORDER
     Dosage: 3 MILLIGRAM, QD
     Route: 065
     Dates: start: 2017
  13. BISOPROLOL [Suspect]
     Active Substance: BISOPROLOL
     Indication: BEHAVIOUR DISORDER
  14. CARBAMAZEPINE. [Suspect]
     Active Substance: CARBAMAZEPINE
     Indication: BEHAVIOUR DISORDER
     Dosage: UNK
     Route: 065
  15. OLANZAPINE. [Suspect]
     Active Substance: OLANZAPINE
     Indication: BEHAVIOUR DISORDER
     Dosage: 10 MILLIGRAM, QD
     Route: 065
     Dates: start: 2017
  16. TOPIRAMATE. [Suspect]
     Active Substance: TOPIRAMATE
     Indication: BEHAVIOUR DISORDER
     Dosage: UNK
     Route: 065
     Dates: start: 2015
  17. MELATONIN [Suspect]
     Active Substance: MELATONIN
     Indication: BEHAVIOUR DISORDER
  18. ESCITALOPRAM [Suspect]
     Active Substance: ESCITALOPRAM OXALATE
     Indication: BEHAVIOUR DISORDER
     Dosage: 10 MILLIGRAM, QD
     Route: 065
  19. CANDESARTAN. [Suspect]
     Active Substance: CANDESARTAN
     Dosage: 16 MILLIGRAM, QD
     Route: 065
     Dates: start: 2017
  20. LEVOMEPROMAZINE [Suspect]
     Active Substance: LEVOMEPROMAZINE
     Indication: BEHAVIOUR DISORDER
     Dosage: 100 MILLIGRAM, QD
     Route: 065
     Dates: start: 2017
  21. OXCARBAZEPINE. [Suspect]
     Active Substance: OXCARBAZEPINE
     Indication: SEIZURE
     Dosage: 900 MILLIGRAM, QD
     Route: 065
  22. AMITRIPTYLINE [Suspect]
     Active Substance: AMITRIPTYLINE
     Indication: BEHAVIOUR DISORDER
     Dosage: UNK
     Route: 065
  23. CANDESARTAN. [Suspect]
     Active Substance: CANDESARTAN
     Indication: BEHAVIOUR DISORDER
  24. VALPROATE SODIUM. [Suspect]
     Active Substance: VALPROATE SODIUM
     Indication: MIGRAINE PROPHYLAXIS
     Dosage: 1200 MILLIGRAM, QD
     Route: 065

REACTIONS (9)
  - Drug ineffective for unapproved indication [Not Recovered/Not Resolved]
  - Intentional product use issue [Not Recovered/Not Resolved]
  - Multiple drug therapy [Not Recovered/Not Resolved]
  - Aggression [Not Recovered/Not Resolved]
  - Off label use [Unknown]
  - Condition aggravated [Unknown]
  - Behaviour disorder [Not Recovered/Not Resolved]
  - Aggression [Unknown]
  - Intentional self-injury [Not Recovered/Not Resolved]

NARRATIVE: CASE EVENT DATE: 2015
